FAERS Safety Report 8097041-2 (Version None)
Quarter: 2012Q1

REPORT INFORMATION
  Report Type: 
  Country: None (occurrence: None)
  Receive Date: 20120129
  Receipt Date: 20111206
  Transmission Date: 20120608
  Serious: No
  Sender: FDA-Public Use
  Company Number: US-ABBOTT-11P-163-0881119-00

PATIENT
  Age: 64 Year
  Sex: Female

DRUGS (11)
  1. METHOTREXATE [Concomitant]
     Indication: PRODUCT USED FOR UNKNOWN INDICATION
     Dosage: ON WEDNESDAY
  2. HUMIRA [Suspect]
     Indication: RHEUMATOID ARTHRITIS
     Dates: start: 20110301
  3. DIOVAN [Concomitant]
     Indication: HYPERTENSION
     Dosage: DAILY
  4. LOSARTAN POTASSIUM [Concomitant]
     Indication: HYPERTENSION
  5. TRIAMTERENE AND HYDROCHLOROTHIAZIDE [Concomitant]
     Indication: HYPERTENSION
     Dosage: 75/50MG
  6. MOVE FREE [Concomitant]
     Indication: SUPPLEMENTATION THERAPY
     Dosage: OVER THE COUNTER
  7. FOLIC ACID [Concomitant]
     Indication: PRODUCT USED FOR UNKNOWN INDICATION
  8. POTASSIUM CHLORIDE [Concomitant]
     Indication: PRODUCT USED FOR UNKNOWN INDICATION
  9. CALCITRATE [Concomitant]
     Indication: ILL-DEFINED DISORDER
     Dosage: CHEWABLE OVER THE COUNTER 600D
  10. FUROSEMIDE [Concomitant]
     Indication: HYPERTENSION
  11. TRAVATAN [Concomitant]
     Indication: GLAUCOMA
     Dosage: 1 GTT EACH EYE

REACTIONS (4)
  - CONTUSION [None]
  - PAIN [None]
  - DRUG EFFECT DECREASED [None]
  - INJECTION SITE REACTION [None]
